FAERS Safety Report 19429670 (Version 1)
Quarter: 2021Q2

REPORT INFORMATION
  Report Type: Spontaneous
  Country: US (occurrence: US)
  Receive Date: 20210617
  Receipt Date: 20210617
  Transmission Date: 20210717
  Serious: No
  Sender: FDA-Public Use
  Company Number: US-PFIZER INC-2021320979

PATIENT
  Age: 75 Year
  Sex: Male
  Weight: 83.91 kg

DRUGS (1)
  1. HYDROCORTISONE ACETATE. [Suspect]
     Active Substance: HYDROCORTISONE ACETATE

REACTIONS (1)
  - Therapeutic product effect incomplete [Not Recovered/Not Resolved]
